FAERS Safety Report 4991105-5 (Version None)
Quarter: 2006Q2

REPORT INFORMATION
  Report Type: 
  Country: None (occurrence: None)
  Receive Date: 20060428
  Receipt Date: 20060421
  Transmission Date: 20061013
  Serious: Yes (Other)
  Sender: FDA-Public Use
  Company Number: 200514000GDS

PATIENT
  Age: 81 Year
  Sex: Female

DRUGS (27)
  1. AVELOX [Suspect]
     Indication: PLEURAL EFFUSION
     Dosage: 400 MG ORAL
     Route: 048
     Dates: start: 20050321, end: 20050424
  2. AVELOX [Suspect]
     Indication: PNEUMONIA
     Dosage: 400 MG ORAL
     Route: 048
     Dates: start: 20050321, end: 20050424
  3. ACETAMINOPHEN [Concomitant]
  4. ACETYLSALICYLIC ACID SRT [Concomitant]
  5. ANTACID TAB [Concomitant]
  6. BUDESONIDE [Concomitant]
  7. CALCIUM GLUCONATE [Concomitant]
  8. DIMENHYDRINATE [Concomitant]
  9. DOCUSATE SODIUM [Concomitant]
  10. ENOXAPARIN SODIUM [Concomitant]
  11. FENTANYL [Concomitant]
  12. FUROSEMIDE [Concomitant]
  13. IPTRATROPIUM [Concomitant]
  14. LEVOTHYROXINE SODIUM [Concomitant]
  15. LIPITOR [Concomitant]
  16. LORAZEPAM [Concomitant]
  17. METOPROLOL TARTRATE [Concomitant]
  18. NITROGLYCERIN [Concomitant]
  19. OXAZEPAM [Concomitant]
  20. POTASSIUM CHLORIDE [Concomitant]
  21. PREDNISONE TAB [Concomitant]
  22. RAMIPRIL [Concomitant]
  23. SALBUTAMOL [Concomitant]
  24. SALMETEROL [Concomitant]
  25. SENNOSIDE [Concomitant]
  26. SPIRONOLACTONE [Concomitant]
  27. ZOPICLONE [Concomitant]

REACTIONS (1)
  - HYPOGLYCAEMIA [None]
